FAERS Safety Report 10049703 (Version 1)
Quarter: 2014Q1

REPORT INFORMATION
  Report Type: Spontaneous
  Country: DE (occurrence: None)
  Receive Date: 20140328
  Receipt Date: 20140328
  Transmission Date: 20141002
  Serious: Yes (Death, Hospitalization)
  Sender: FDA-Public Use
  Company Number: 2014P1002428

PATIENT
  Age: 70 Year
  Sex: Male

DRUGS (5)
  1. GLYBURIDE [Suspect]
     Indication: TYPE 2 DIABETES MELLITUS
     Dates: start: 201110, end: 20120111
  2. NEXAVAR [Suspect]
     Indication: HEPATOCELLULAR CARCINOMA
     Dates: start: 20120110
  3. PROPRANOLOL [Suspect]
  4. TORASEMIDE [Suspect]
  5. AMLODIPINE [Suspect]

REACTIONS (9)
  - Hypoglycaemia [None]
  - Disorientation [None]
  - Somnolence [None]
  - Neurological symptom [None]
  - Blood albumin decreased [None]
  - Hepatic cirrhosis [None]
  - Hepatorenal syndrome [None]
  - Hepatic encephalopathy [None]
  - Drug interaction [None]
